FAERS Safety Report 15694899 (Version 1)
Quarter: 2018Q4

REPORT INFORMATION
  Report Type: Spontaneous
  Country: GB (occurrence: GB)
  Receive Date: 20181206
  Receipt Date: 20181206
  Transmission Date: 20190205
  Serious: Yes (Hospitalization)
  Sender: FDA-Public Use
  Company Number: GB-PERRIGO-18GB013466

PATIENT

DRUGS (2)
  1. GAVISCON                           /00237601/ [Concomitant]
     Active Substance: ALUMINUM HYDROXIDE\MAGNESIUM CARBONATE
     Indication: REFLUX GASTRITIS
     Dosage: UNK
     Route: 065
     Dates: start: 20180924
  2. RANITIDINE HYDROCHLORIDE. [Suspect]
     Active Substance: RANITIDINE HYDROCHLORIDE
     Indication: REFLUX GASTRITIS
     Dosage: UNK
     Route: 048

REACTIONS (12)
  - Overdose [Recovered/Resolved]
  - Vomiting [Unknown]
  - Oliguria [Unknown]
  - Condition aggravated [Unknown]
  - Lethargy [Unknown]
  - Fluid intake reduced [Recovering/Resolving]
  - Product dispensing error [Unknown]
  - Urine analysis abnormal [Unknown]
  - Constipation [Recovering/Resolving]
  - Hypopnoea [Unknown]
  - Wheezing [Recovering/Resolving]
  - Dehydration [Unknown]

NARRATIVE: CASE EVENT DATE: 20180928
